FAERS Safety Report 18404712 (Version 1)
Quarter: 2020Q4

REPORT INFORMATION
  Report Type: Spontaneous
  Country: US (occurrence: US)
  Receive Date: 20201020
  Receipt Date: 20201020
  Transmission Date: 20210114
  Serious: No
  Sender: FDA-Public Use
  Company Number: None

PATIENT
  Age: 35 Month
  Sex: Female
  Weight: 11.5 kg

DRUGS (4)
  1. MONTELUKAST [Suspect]
     Active Substance: MONTELUKAST SODIUM
     Indication: SEASONAL ALLERGY
     Route: 048
     Dates: start: 20201008, end: 20201017
  2. DESOXIMOMETASONE 0.25% OINTMENT [Concomitant]
     Dates: start: 20180622
  3. AUVI-Q [Concomitant]
     Active Substance: EPINEPHRINE
     Dates: start: 20180622
  4. CHILDRENS ZYRTEC [Concomitant]
     Active Substance: CETIRIZINE HYDROCHLORIDE
     Dates: start: 20180622

REACTIONS (4)
  - Crying [None]
  - Social avoidant behaviour [None]
  - Depressed mood [None]
  - Insomnia [None]

NARRATIVE: CASE EVENT DATE: 20201017
